FAERS Safety Report 4750368-1 (Version None)
Quarter: 2005Q3

REPORT INFORMATION
  Report Type: 
  Country: None (occurrence: None)
  Receive Date: 20050823
  Receipt Date: 20050819
  Transmission Date: 20060218
  Serious: Yes (Death, Life-Threatening)
  Sender: FDA-Public Use
  Company Number: 2005CG01407

PATIENT
  Age: 77 Year
  Sex: Female

DRUGS (6)
  1. NEXIUM [Suspect]
     Route: 048
  2. URISPAS [Suspect]
     Route: 048
  3. DIFFU-K [Suspect]
     Route: 048
  4. FLECAINIDE ACETATE [Suspect]
     Route: 048
  5. MICARDIS [Suspect]
     Route: 048
  6. PHYSIOTENS [Suspect]
     Route: 048

REACTIONS (7)
  - GASTRIC HAEMORRHAGE [None]
  - HEPATIC ENZYME INCREASED [None]
  - HEPATIC FAILURE [None]
  - HIATUS HERNIA [None]
  - HYPERBILIRUBINAEMIA [None]
  - PORTAL HYPERTENSION [None]
  - RENAL FAILURE [None]
